FAERS Safety Report 9088209 (Version 3)
Quarter: 2013Q1

REPORT INFORMATION
  Report Type: Spontaneous
  Country: SE (occurrence: SE)
  Receive Date: 20130201
  Receipt Date: 20130306
  Transmission Date: 20140127
  Serious: Yes (Other)
  Sender: FDA-Public Use
  Company Number: SE-ROCHE-1176594

PATIENT
  Age: 83 Year
  Sex: Female

DRUGS (2)
  1. AVASTIN [Suspect]
     Indication: MACULAR DEGENERATION
     Dosage: AVASTIN CONCENTRATE FOR SOLUTION FOR INFUSION 25 MG/ML
     Route: 065
     Dates: start: 20121114, end: 20121114
  2. AVASTIN [Suspect]
     Indication: OFF LABEL USE
     Dosage: AVASTIN CONCENTRATE FOR SOLUTION FOR INFUSION 25 MG/ML
     Route: 065
     Dates: start: 20121114, end: 20121114

REACTIONS (2)
  - Visual impairment [Recovered/Resolved]
  - Muscular weakness [Recovered/Resolved]
